FAERS Safety Report 5174331-4 (Version None)
Quarter: 2006Q4

REPORT INFORMATION
  Report Type: 
  Country: None (occurrence: None)
  Receive Date: 20061214
  Receipt Date: 20060921
  Transmission Date: 20070319
  Serious: Yes (Death)
  Sender: FDA-Public Use
  Company Number: US-ELI_LILLY_AND_COMPANY-US200609005452

PATIENT
  Age: 65 Year
  Sex: Female
  Weight: 58.956 kg

DRUGS (1)
  1. ZYPREXA [Suspect]

REACTIONS (2)
  - DEATH [None]
  - HYPERGLYCAEMIA [None]
